FAERS Safety Report 12361576 (Version 2)
Quarter: 2017Q2

REPORT INFORMATION
  Report Type: Spontaneous
  Country: US (occurrence: US)
  Receive Date: 20160512
  Receipt Date: 20170623
  Transmission Date: 20170830
  Serious: Yes (Hospitalization)
  Sender: FDA-Public Use
  Company Number: US-SA-2016SA051118

PATIENT
  Age: 72 Year
  Sex: Female
  Weight: 75.4 kg

DRUGS (9)
  1. VITAMIN D3 [Concomitant]
     Active Substance: CHOLECALCIFEROL
  2. PRALUENT [Suspect]
     Active Substance: ALIROCUMAB
     Indication: HYPERLIPIDAEMIA
     Dosage: ROUTE: UNDER SKIN
     Route: 058
     Dates: start: 20160211, end: 20170602
  3. CENTRUM SILVER [Concomitant]
     Active Substance: MINERALS\VITAMINS
  4. PRALUENT [Suspect]
     Active Substance: ALIROCUMAB
     Indication: HYPERLIPIDAEMIA
     Dosage: ROUTE: UNDER SKIN
     Route: 058
     Dates: start: 20160211, end: 20170602
  5. CALCIUM [Concomitant]
     Active Substance: CALCIUM
  6. PRALUENT [Suspect]
     Active Substance: ALIROCUMAB
     Indication: HYPERCHOLESTEROLAEMIA
     Dosage: ROUTE: UNDER SKIN
     Route: 058
     Dates: start: 20160211, end: 20170602
  7. PRALUENT [Suspect]
     Active Substance: ALIROCUMAB
     Indication: HYPERCHOLESTEROLAEMIA
     Dosage: ROUTE: UNDER SKIN
     Route: 058
     Dates: start: 20160211, end: 20170602
  8. ALIROCUMAB PREFILLED PEN [Concomitant]
     Active Substance: ALIROCUMAB
     Indication: HYPERCHOLESTEROLAEMIA
     Dates: start: 20160212
  9. FENTANYL. [Concomitant]
     Active Substance: FENTANYL

REACTIONS (5)
  - Intervertebral disc protrusion [Unknown]
  - Nerve compression [Unknown]
  - Weight increased [Unknown]
  - Swelling [Unknown]
  - Inappropriate schedule of drug administration [Unknown]

NARRATIVE: CASE EVENT DATE: 201602
